FAERS Safety Report 21050348 (Version 4)
Quarter: 2022Q4

REPORT INFORMATION
  Report Type: Report from Study
  Country: US (occurrence: US)
  Receive Date: 20220707
  Receipt Date: 20221004
  Transmission Date: 20230113
  Serious: Yes (Hospitalization)
  Sender: FDA-Public Use
  Company Number: US-ABBVIE-22K-163-4457820-00

PATIENT
  Sex: Female

DRUGS (5)
  1. HUMIRA [Suspect]
     Active Substance: ADALIMUMAB
     Indication: Colitis ulcerative
     Dosage: CF PEN
     Route: 058
  2. HUMIRA [Suspect]
     Active Substance: ADALIMUMAB
     Dosage: CF PEN
     Route: 058
     Dates: start: 2020
  3. PFIZER-BIONTECH COVID-19 VACCINE [Suspect]
     Active Substance: TOZINAMERAN
     Indication: COVID-19 immunisation
     Dosage: FIRST DOSE
     Route: 030
     Dates: start: 20210406, end: 20210406
  4. PFIZER-BIONTECH COVID-19 VACCINE [Suspect]
     Active Substance: TOZINAMERAN
     Indication: COVID-19 immunisation
     Dosage: BOOSTER DOSE
     Route: 030
     Dates: start: 20220103, end: 20220103
  5. PFIZER-BIONTECH COVID-19 VACCINE [Suspect]
     Active Substance: TOZINAMERAN
     Indication: COVID-19 immunisation
     Dosage: SECOND DOSE
     Route: 030
     Dates: start: 20210504, end: 20210504

REACTIONS (11)
  - Colitis ulcerative [Unknown]
  - Obstruction [Recovering/Resolving]
  - Inflammation [Recovering/Resolving]
  - COVID-19 [Unknown]
  - Malaise [Unknown]
  - Hypoaesthesia [Unknown]
  - Pyrexia [Unknown]
  - Fatigue [Unknown]
  - COVID-19 [Recovered/Resolved]
  - Vaccination site pain [Unknown]
  - Headache [Unknown]

NARRATIVE: CASE EVENT DATE: 20200101
